FAERS Safety Report 7546434-8 (Version None)
Quarter: 2011Q2

REPORT INFORMATION
  Report Type: 
  Country: None (occurrence: None)
  Receive Date: 20110614
  Receipt Date: 20110607
  Transmission Date: 20111010
  Serious: Yes (Hospitalization)
  Sender: FDA-Public Use
  Company Number: US-B.I. PHARMACEUTICALS,INC./RIDGEFIELD-2011-BP-10287BP

PATIENT
  Sex: Male

DRUGS (15)
  1. PRADAXA [Suspect]
     Indication: IDIOPATHIC THROMBOCYTOPENIC PURPURA
     Dosage: 300 MG
     Route: 048
     Dates: start: 20110104
  2. NEXIUM [Concomitant]
     Indication: ULCER
  3. ALLOPURINOL [Concomitant]
     Indication: PROPHYLAXIS
  4. PREDNISONE [Concomitant]
  5. NEXIUM [Concomitant]
     Indication: GASTROOESOPHAGEAL REFLUX DISEASE
     Route: 048
  6. JALYN [Concomitant]
     Indication: URINE FLOW DECREASED
  7. VITAMIN TAB [Concomitant]
     Indication: PROPHYLAXIS
  8. ZOCOR [Concomitant]
     Indication: BLOOD CHOLESTEROL INCREASED
     Route: 048
  9. VALIUM [Concomitant]
     Indication: SLEEP DISORDER
     Route: 048
  10. PROMACTA [Concomitant]
     Indication: IDIOPATHIC THROMBOCYTOPENIC PURPURA
     Route: 048
     Dates: start: 20110107, end: 20110329
  11. CYMBALTA [Concomitant]
     Indication: RESTLESS LEGS SYNDROME
     Route: 048
  12. PRADAXA [Suspect]
     Dosage: 300 MG
     Route: 048
     Dates: start: 20110331
  13. METOPROLOL [Concomitant]
     Indication: CARDIAC DISORDER
     Route: 048
  14. VALIUM [Concomitant]
     Indication: RESTLESS LEGS SYNDROME
  15. PROMACTA [Concomitant]
     Route: 048
     Dates: start: 20110331

REACTIONS (1)
  - PLATELET COUNT DECREASED [None]
